FAERS Safety Report 6960224-6 (Version None)
Quarter: 2010Q3

REPORT INFORMATION
  Report Type: 
  Country: None (occurrence: None)
  Receive Date: 20100901
  Receipt Date: 20100826
  Transmission Date: 20110219
  Serious: Yes (Hospitalization)
  Sender: FDA-Public Use
  Company Number: KR-BAYER-201033636GPV

PATIENT
  Age: 42 Year
  Sex: Male
  Weight: 55 kg

DRUGS (8)
  1. SORAFENIB [Suspect]
     Indication: HEPATIC NEOPLASM MALIGNANT
     Dosage: TOTAL DAILY DOSE: 400 MG
     Route: 048
     Dates: start: 20090701, end: 20100628
  2. VITAMIN B COMPLEX CAP [Concomitant]
     Indication: HYPOVITAMINOSIS
     Route: 048
     Dates: start: 20081023
  3. ENTECAVIR [Concomitant]
     Indication: HEPATITIS B
     Dates: start: 20090423
  4. FENTANYL CITRATE [Concomitant]
     Indication: ABDOMINAL PAIN
     Dates: start: 20090618
  5. FENTANYL CITRATE [Concomitant]
     Dates: end: 20100618
  6. HYDROCORTISONE [Concomitant]
     Indication: PROPHYLAXIS
     Dates: start: 20100609
  7. OXYCODONE [Concomitant]
     Indication: ABDOMINAL PAIN
     Dosage: TOTAL DAILY DOSE: 20 MG
     Route: 048
     Dates: start: 20081022
  8. SPIRONOLACTONE [Concomitant]
     Indication: ASCITES
     Route: 048
     Dates: start: 20100304

REACTIONS (1)
  - SPLENIC INFARCTION [None]
